FAERS Safety Report 18378636 (Version 7)
Quarter: 2020Q4

REPORT INFORMATION
  Report Type: Spontaneous
  Country: JP (occurrence: JP)
  Receive Date: 20201013
  Receipt Date: 20201123
  Transmission Date: 20210114
  Serious: Yes (Death, Other)
  Sender: FDA-Public Use
  Company Number: JP-PFIZER INC-2020390357

PATIENT
  Sex: Female
  Weight: 40 kg

DRUGS (23)
  1. METHOTREXATE. [Suspect]
     Active Substance: METHOTREXATE
     Indication: ACUTE LEUKAEMIA
     Dosage: 5 MG
  2. METHOTREXATE. [Suspect]
     Active Substance: METHOTREXATE
     Dosage: 100 MG
  3. SOLU-MEDROL [Suspect]
     Active Substance: METHYLPREDNISOLONE SODIUM SUCCINATE
     Indication: ACUTE LYMPHOCYTIC LEUKAEMIA
     Dosage: 500 MG (X 6, WITH ANTICANCER DRUGS)
  4. LEUCOVORIN. [Suspect]
     Active Substance: LEUCOVORIN
     Dosage: UNK
  5. METHOTREXATE. [Suspect]
     Active Substance: METHOTREXATE
     Dosage: 1400 MG FOR AROUND 2 DAYS
  6. METHOTREXATE. [Suspect]
     Active Substance: METHOTREXATE
     Dosage: 100 MG
  7. ENDOXAN [CYCLOPHOSPHAMIDE] [Concomitant]
     Active Substance: CYCLOPHOSPHAMIDE
     Dosage: UNK
  8. PREDONINE [Suspect]
     Active Substance: PREDNISOLONE
     Dosage: UNK
     Route: 048
  9. CEFEPIME [Concomitant]
     Active Substance: CEFEPIME HYDROCHLORIDE
     Dosage: UNK
  10. DIAMOX SEQUELS [Concomitant]
     Active Substance: ACETAZOLAMIDE
     Indication: GLAUCOMA
     Dosage: UNK
  11. METHOTREXATE. [Suspect]
     Active Substance: METHOTREXATE
     Dosage: 4100 MG, TWICE
  12. SOLU-CORTEF [Suspect]
     Active Substance: HYDROCORTISONE SODIUM SUCCINATE
     Indication: ACUTE LYMPHOCYTIC LEUKAEMIA
     Dosage: 50 MG
     Route: 037
  13. VFEND [Suspect]
     Active Substance: VORICONAZOLE
     Dosage: 600 MG
     Route: 048
  14. DIAMOX SEQUELS [Concomitant]
     Active Substance: ACETAZOLAMIDE
     Indication: INTRAOCULAR PRESSURE INCREASED
  15. FLUCONAZOLE. [Concomitant]
     Active Substance: FLUCONAZOLE
     Dosage: UNK
  16. VANCOMYCIN HYDROCHLORIDE. [Concomitant]
     Active Substance: VANCOMYCIN HYDROCHLORIDE
     Dosage: UNK
  17. TEICOPLANIN [Concomitant]
     Active Substance: TEICOPLANIN
     Dosage: UNK
  18. FLUDARA [Concomitant]
     Active Substance: FLUDARABINE PHOSPHATE
  19. METHOTREXATE. [Suspect]
     Active Substance: METHOTREXATE
     Dosage: 4 G (4 AMPULES OF 1000 MG) ONCE
  20. METHOTREXATE. [Suspect]
     Active Substance: METHOTREXATE
     Dosage: 15 MG
     Route: 037
  21. CYLOCIDE [Concomitant]
     Active Substance: CYTARABINE
     Dosage: UNK
  22. METHOTREXATE. [Suspect]
     Active Substance: METHOTREXATE
     Dosage: 4000 MG FOR TWO CONSECUTIVE DAYS
  23. VFEND [Suspect]
     Active Substance: VORICONAZOLE
     Dosage: 300 MG
     Route: 048
     Dates: end: 202003

REACTIONS (31)
  - Contraindicated product administered [Fatal]
  - Sepsis [Unknown]
  - Staphylococcal infection [Not Recovered/Not Resolved]
  - Hepatic cirrhosis [Unknown]
  - Weight decreased [Unknown]
  - Neoplasm progression [Unknown]
  - Shock [Fatal]
  - Cytomegalovirus infection [Unknown]
  - Hepatic failure [Unknown]
  - Off label use [Unknown]
  - Product use issue [Unknown]
  - Dyspnoea [Unknown]
  - Pneumocystis jirovecii pneumonia [Unknown]
  - Disseminated intravascular coagulation [Unknown]
  - Fungal infection [Unknown]
  - Viral infection [Unknown]
  - Bacterial infection [Unknown]
  - Renal disorder [Unknown]
  - Incorrect route of product administration [Unknown]
  - Product use in unapproved indication [Unknown]
  - Decreased appetite [Unknown]
  - Myelosuppression [Fatal]
  - Hepatic encephalopathy [Unknown]
  - Mucormycosis [Unknown]
  - Aspergillus infection [Unknown]
  - Candida infection [Unknown]
  - Eye disorder [Unknown]
  - Infection [Fatal]
  - Interstitial lung disease [Unknown]
  - Glaucoma [Unknown]
  - Lymphocyte count decreased [Unknown]

NARRATIVE: CASE EVENT DATE: 202003
